FAERS Safety Report 12558422 (Version 1)
Quarter: 2016Q3

REPORT INFORMATION
  Report Type: Report from Study
  Country: US (occurrence: US)
  Receive Date: 20160714
  Receipt Date: 20160714
  Transmission Date: 20161109
  Serious: Yes (Hospitalization)
  Sender: FDA-Public Use
  Company Number: US-009507513-1607USA003038

PATIENT
  Age: 43 Year
  Sex: Female
  Weight: 55.6 kg

DRUGS (1)
  1. INTERFERON ALFA-2B [Suspect]
     Active Substance: INTERFERON ALFA-2B
     Indication: MALIGNANT MELANOMA STAGE III
     Dosage: DOSE: 13.2 MILLION UNITS/M2, FREQUENCY: MONDAY TO FRIDAY X 4 WEEK
     Route: 042

REACTIONS (4)
  - Vomiting [Unknown]
  - Nausea [Unknown]
  - Flank pain [Unknown]
  - Metabolic acidosis [Unknown]

NARRATIVE: CASE EVENT DATE: 20160705
